FAERS Safety Report 5374314-5 (Version None)
Quarter: 2007Q2

REPORT INFORMATION
  Report Type: 
  Country: None (occurrence: None)
  Receive Date: 20070629
  Receipt Date: 20070625
  Transmission Date: 20071010
  Serious: Yes (Other)
  Sender: FDA-Public Use
  Company Number: US-BAYER-200711969BWH

PATIENT
  Age: 71 Year
  Sex: Male

DRUGS (9)
  1. LEVITRA [Suspect]
     Indication: DRUG USE FOR UNKNOWN INDICATION
     Dosage: TOTAL DAILY DOSE: 20 MG  UNIT DOSE: 20 MG
     Route: 048
     Dates: start: 20040101
  2. VIAGRA [Suspect]
  3. ZETIA [Concomitant]
  4. COREG [Concomitant]
  5. PLAVIX [Concomitant]
  6. ENALAPRIL [Concomitant]
  7. LASIX [Concomitant]
  8. DIGOXIN [Concomitant]
  9. ASPIRIN [Concomitant]

REACTIONS (1)
  - PENIS DEVIATION [None]
